FAERS Safety Report 6287606-2 (Version None)
Quarter: 2009Q3

REPORT INFORMATION
  Report Type: 
  Country: None (occurrence: None)
  Receive Date: 20090727
  Receipt Date: 20090727
  Transmission Date: 20100115
  Serious: Yes (Other)
  Sender: FDA-Public Use
  Company Number: None

PATIENT
  Sex: Female
  Weight: 81.6475 kg

DRUGS (1)
  1. CIPROFLOXACIN HCL [Suspect]
     Indication: URINARY TRACT INFECTION
     Dosage: 500 MG 1 EVERY 12 HOURS
     Dates: start: 20090612, end: 20090622

REACTIONS (3)
  - INSOMNIA [None]
  - MOVEMENT DISORDER [None]
  - MYALGIA [None]
